FAERS Safety Report 19057491 (Version 4)
Quarter: 2021Q2

REPORT INFORMATION
  Report Type: Spontaneous
  Country: US (occurrence: US)
  Receive Date: 20210324
  Receipt Date: 20210428
  Transmission Date: 20210717
  Serious: Yes (Hospitalization)
  Sender: FDA-Public Use
  Company Number: US-VERTEX PHARMACEUTICALS-2021-004679

PATIENT
  Age: 22 Year
  Sex: Male

DRUGS (1)
  1. TRIKAFTA [Suspect]
     Active Substance: ELEXACAFTOR\IVACAFTOR\TEZACAFTOR
     Indication: CYSTIC FIBROSIS
     Dosage: (100MG ELEXACAFTOR/50MG TEZACAFTOR/75MG IVACAFTOR), FULL DOSE
     Route: 048
     Dates: start: 20191211

REACTIONS (1)
  - Schizophreniform disorder [Not Recovered/Not Resolved]

NARRATIVE: CASE EVENT DATE: 202102
